FAERS Safety Report 7577894-4 (Version None)
Quarter: 2011Q2

REPORT INFORMATION
  Report Type: 
  Country: None (occurrence: None)
  Receive Date: 20110628
  Receipt Date: 20110620
  Transmission Date: 20111010
  Serious: Yes (Other)
  Sender: FDA-Public Use
  Company Number: PHEH2008US07607

PATIENT
  Sex: Female

DRUGS (27)
  1. DEXAMETHASONE [Concomitant]
     Dosage: 4 MG
  2. ZIAC [Concomitant]
  3. TAMOXIFEN CITRATE [Concomitant]
     Dosage: 20 MG
  4. CEPHALEXIN [Concomitant]
     Dosage: 500 MG
  5. DARVOCET-N 50 [Concomitant]
  6. NORCO [Concomitant]
  7. SHARK CARTILAGE [Concomitant]
  8. ZOMETA [Suspect]
     Dosage: UNK
     Dates: start: 20040913, end: 20060601
  9. LORTAB [Concomitant]
     Dosage: 7.5 MG, UNK
  10. LEXAPRO [Concomitant]
     Dosage: 20 MG
  11. CALCIUM CARBONATE [Concomitant]
  12. FENTANYL [Concomitant]
     Dosage: 25 MG, UNK
     Route: 042
  13. OXYCODONE AND ACETAMINOPHEN [Concomitant]
     Dosage: 5/325 MG
  14. BLOOD TRANSFUSION, AUXILIARY PRODUCTS [Concomitant]
  15. LEVOXYL [Concomitant]
  16. XANAX [Concomitant]
  17. ZOFRAN [Concomitant]
     Route: 017
  18. AREDIA [Suspect]
  19. AMBIEN [Concomitant]
     Dosage: 10 MG
  20. FERROUS SULFATE TAB [Concomitant]
     Dosage: 325 MG
  21. VICODIN [Concomitant]
  22. FLAXSEED OIL [Concomitant]
  23. ZITHROMAX [Concomitant]
     Dosage: 250 MG
  24. SYNTHROID [Concomitant]
  25. CORZIDE ^MONARCH^ [Concomitant]
  26. GLUCOSAMINE [Concomitant]
  27. ADVIL LIQUI-GELS [Concomitant]

REACTIONS (53)
  - THYROID MASS [None]
  - OSTEONECROSIS OF JAW [None]
  - DENTAL FISTULA [None]
  - IMPAIRED HEALING [None]
  - SWELLING [None]
  - UPPER RESPIRATORY TRACT INFECTION [None]
  - COLLAPSE OF LUNG [None]
  - NERVE INJURY [None]
  - MYALGIA [None]
  - DRY SKIN [None]
  - DYSGEUSIA [None]
  - RENAL CYST [None]
  - INTERVERTEBRAL DISC DEGENERATION [None]
  - RIB FRACTURE [None]
  - RENAL DISORDER [None]
  - UTERINE LEIOMYOMA [None]
  - ATELECTASIS [None]
  - OSTEITIS [None]
  - FATIGUE [None]
  - OSTEOSCLEROSIS [None]
  - TOOTH LOSS [None]
  - MACROCYTOSIS [None]
  - HEPATIC STEATOSIS [None]
  - SEROMA [None]
  - BONE DISORDER [None]
  - PAIN [None]
  - TOOTH FRACTURE [None]
  - CONCOMITANT DISEASE PROGRESSION [None]
  - DEPRESSION [None]
  - VISUAL IMPAIRMENT [None]
  - BREAST MASS [None]
  - TOOTH ABSCESS [None]
  - WEIGHT INCREASED [None]
  - GOITRE [None]
  - BREAST CYST [None]
  - PLEURAL EFFUSION [None]
  - BONE LESION [None]
  - PAGET'S DISEASE OF THE BREAST [None]
  - PARAESTHESIA [None]
  - LUNG NEOPLASM [None]
  - BONE PAIN [None]
  - ORAL DISORDER [None]
  - ARTHRALGIA [None]
  - INFECTION [None]
  - METASTASES TO BONE [None]
  - OSTEOPOROSIS [None]
  - T-LYMPHOCYTE COUNT INCREASED [None]
  - NIGHT SWEATS [None]
  - NEOPLASM PROGRESSION [None]
  - NEOPLASM MALIGNANT [None]
  - DENTAL CARIES [None]
  - HOT FLUSH [None]
  - OEDEMA PERIPHERAL [None]
